FAERS Safety Report 9526036 (Version 1)
Quarter: 2013Q1

REPORT INFORMATION
  Report Type: Spontaneous
  Country: US (occurrence: None)
  Receive Date: 20130314
  Receipt Date: 20130314
  Transmission Date: 20140127
  Serious: No
  Sender: FDA-Public Use
  Company Number: 1301USA004402

PATIENT
  Age: 41 Year
  Sex: Male

DRUGS (3)
  1. PEGINTRON (PEGINTERFERON ALFA-2B) POWDER FOR INJECTION [Suspect]
     Indication: HEPATITIS C
     Dates: start: 20121029
  2. RIBAVIRIN (RIBAVIRIN) CAPSULE [Suspect]
     Indication: HEPATITIS C
     Route: 048
     Dates: start: 20121029
  3. VICTRELIS (BOCEPREVIR) CAPSULE [Suspect]
     Route: 048
     Dates: start: 20121119

REACTIONS (3)
  - Fatigue [None]
  - Myalgia [None]
  - Nausea [None]
